FAERS Safety Report 12060091 (Version 1)
Quarter: 2016Q1

REPORT INFORMATION
  Report Type: Spontaneous
  Country: US (occurrence: US)
  Receive Date: 20160210
  Receipt Date: 20160210
  Transmission Date: 20160526
  Serious: Yes (Other)
  Sender: FDA-Public Use
  Company Number: GXBR2016US000630

PATIENT
  Sex: Female

DRUGS (1)
  1. AMPICILLIN FOR INJECTION, USP [Suspect]
     Active Substance: AMPICILLIN
     Indication: SEPSIS
     Dosage: UNK DF, UNK
     Route: 041
     Dates: start: 20160110

REACTIONS (4)
  - Selective eating disorder [Not Recovered/Not Resolved]
  - Infusion site extravasation [Recovering/Resolving]
  - Eschar [Recovering/Resolving]
  - Skin exfoliation [Recovering/Resolving]
